FAERS Safety Report 8419335-0 (Version None)
Quarter: 2012Q2

REPORT INFORMATION
  Report Type: 
  Country: None (occurrence: None)
  Receive Date: 20120607
  Receipt Date: 20120531
  Transmission Date: 20120825
  Serious: Yes (Life-Threatening, Other)
  Sender: FDA-Public Use
  Company Number: US-ROCHE-804080

PATIENT
  Age: 61 Year
  Sex: Female

DRUGS (4)
  1. HERCEPTIN [Suspect]
     Indication: BREAST CANCER
     Route: 065
     Dates: start: 20000101, end: 20020101
  2. CYTOXAN [Suspect]
     Indication: BREAST CANCER
     Route: 042
     Dates: start: 20000101
  3. TAXOL [Suspect]
     Indication: BREAST CANCER
     Route: 042
     Dates: start: 20000101, end: 20020101
  4. ADRIAMYCIN PFS [Suspect]
     Indication: BREAST CANCER
     Route: 042
     Dates: start: 20000101

REACTIONS (1)
  - ACUTE LYMPHOCYTIC LEUKAEMIA [None]
